FAERS Safety Report 16111584 (Version 1)
Quarter: 2019Q2

REPORT INFORMATION
  Report Type: Spontaneous
  Country: US (occurrence: US)
  Receive Date: 20190322
  Receipt Date: 20190322
  Transmission Date: 20190711
  Serious: No
  Sender: FDA-Public Use
  Company Number: None

PATIENT
  Age: 59 Year
  Sex: Female
  Weight: 67.59 kg

DRUGS (1)
  1. XELODA [Suspect]
     Active Substance: CAPECITABINE
     Indication: BREAST CANCER FEMALE
     Dosage: ?          OTHER FREQUENCY:2000 AM @ 1500 PM;?
     Route: 048
     Dates: start: 20190121

REACTIONS (4)
  - Diarrhoea [None]
  - Nausea [None]
  - Abdominal pain [None]
  - Vomiting [None]
